FAERS Safety Report 9741318 (Version 2)
Quarter: 2013Q4

REPORT INFORMATION
  Report Type: Report from Study
  Country: GB (occurrence: GB)
  Receive Date: 20131209
  Receipt Date: 20131220
  Transmission Date: 20140711
  Serious: Yes (Other)
  Sender: FDA-Public Use
  Company Number: GB-BAXTER-2013BAX048060

PATIENT
  Age: 54 Year
  Sex: Male

DRUGS (2)
  1. KIOVIG 100 MG/ML SOLUTION FOR INFUSION [Suspect]
     Indication: BRUTON^S AGAMMAGLOBULINAEMIA
     Route: 065
     Dates: start: 2008
  2. SANDOGLOBULIN [Concomitant]
     Indication: BRUTON^S AGAMMAGLOBULINAEMIA
     Route: 065
     Dates: end: 2008

REACTIONS (1)
  - Bronchitis [Recovered/Resolved]
